FAERS Safety Report 19269879 (Version 1)
Quarter: 2021Q2

REPORT INFORMATION
  Report Type: Report from Study
  Country: US (occurrence: US)
  Receive Date: 20210518
  Receipt Date: 20210518
  Transmission Date: 20210717
  Serious: Yes (Other)
  Sender: FDA-Public Use
  Company Number: US-JNJFOC-20180307591

PATIENT
  Age: 70 Year
  Sex: Male

DRUGS (7)
  1. COREG [Concomitant]
     Active Substance: CARVEDILOL
  2. IBUPROFEN. [Interacting]
     Active Substance: IBUPROFEN
     Indication: SINUSITIS
     Route: 065
  3. ALDACTONE [Concomitant]
     Active Substance: SPIRONOLACTONE
  4. IMBRUVICA [Suspect]
     Active Substance: IBRUTINIB
     Route: 048
     Dates: start: 20170218
  5. IMBRUVICA [Suspect]
     Active Substance: IBRUTINIB
     Indication: WALDENSTROM^S MACROGLOBULINAEMIA
     Route: 048
     Dates: start: 20170109
  6. LISINOPRIL. [Concomitant]
     Active Substance: LISINOPRIL
  7. LASIX [Concomitant]
     Active Substance: FUROSEMIDE

REACTIONS (8)
  - Oropharyngeal pain [Unknown]
  - Epistaxis [Unknown]
  - Tympanic membrane perforation [Unknown]
  - Fall [Unknown]
  - Sinusitis [Unknown]
  - Haematochezia [Recovered/Resolved]
  - Illness [Unknown]
  - Drug interaction [Unknown]

NARRATIVE: CASE EVENT DATE: 201803
